FAERS Safety Report 7649580-3 (Version None)
Quarter: 2011Q3

REPORT INFORMATION
  Report Type: 
  Country: None (occurrence: None)
  Receive Date: 20110802
  Receipt Date: 20110721
  Transmission Date: 20111222
  Serious: Yes (Other)
  Sender: FDA-Public Use
  Company Number: US-RANBAXY-2011US-44237

PATIENT

DRUGS (5)
  1. AMOXICILLIN [Suspect]
     Dosage: 500 MG, TID
     Route: 048
     Dates: start: 20080101
  2. AMOXICILLIN [Suspect]
     Indication: ANTHRAX
  3. AMOXICILLIN [Suspect]
     Dosage: 500 MG, UNK
     Route: 048
     Dates: start: 20080101
  4. VALTREX [Concomitant]
     Indication: HERPES VIRUS INFECTION
     Dosage: UNK
     Route: 065
     Dates: start: 20080101
  5. AMOXICILLIN [Suspect]
     Indication: LYME DISEASE
     Dosage: 500 MG, UNK, 3 CAP/DAY
     Route: 048
     Dates: start: 20080101

REACTIONS (2)
  - CONGENITAL ANOMALY IN OFFSPRING [None]
  - MATERNAL EXPOSURE DURING PREGNANCY [None]
